FAERS Safety Report 5906239-8 (Version None)
Quarter: 2008Q4

REPORT INFORMATION
  Report Type: 
  Country: None (occurrence: None)
  Receive Date: 20081002
  Receipt Date: 20080922
  Transmission Date: 20090506
  Serious: Yes (Hospitalization)
  Sender: FDA-Public Use
  Company Number: ES-PFIZER INC-2008079455

PATIENT
  Age: 33 Year
  Sex: Female

DRUGS (1)
  1. CLINDAMYCIN HYDROCHLORIDE [Suspect]
     Indication: ABSCESS
     Dosage: DAILY DOSE:900MG
     Route: 048
     Dates: start: 20080514, end: 20080519

REACTIONS (1)
  - DIARRHOEA HAEMORRHAGIC [None]
